FAERS Safety Report 15807333 (Version 1)
Quarter: 2019Q1

REPORT INFORMATION
  Report Type: Spontaneous
  Country: US (occurrence: US)
  Receive Date: 20190110
  Receipt Date: 20190110
  Transmission Date: 20190417
  Serious: Yes (Hospitalization)
  Sender: FDA-Public Use
  Company Number: None

PATIENT
  Age: 73 Year
  Sex: Male

DRUGS (22)
  1. ATENELOL [Concomitant]
     Active Substance: ATENOLOL
  2. DIVALPROEX [Concomitant]
     Active Substance: DIVALPROEX SODIUM
  3. FINASTERIDE. [Concomitant]
     Active Substance: FINASTERIDE
  4. FISH OIL [Concomitant]
     Active Substance: FISH OIL
  5. METFORMIN [Concomitant]
     Active Substance: METFORMIN HYDROCHLORIDE
  6. VITAMIN D [Concomitant]
     Active Substance: CHOLECALCIFEROL
  7. SIROLIMUS. [Suspect]
     Active Substance: SIROLIMUS
     Indication: RENAL TRANSPLANT
     Route: 048
     Dates: start: 20170124
  8. FUROSEMIDE. [Concomitant]
     Active Substance: FUROSEMIDE
  9. POT CHLO [Concomitant]
  10. TRAMADOL. [Concomitant]
     Active Substance: TRAMADOL
  11. FLUTICASONE. [Concomitant]
     Active Substance: FLUTICASONE
  12. MYCOPHENOLAT [Concomitant]
     Active Substance: MYCOPHENOLATE MOFETIL
  13. CELLCEPT [Concomitant]
     Active Substance: MYCOPHENOLATE MOFETIL\MYCOPHENOLATE MOFETIL HYDROCHLORIDE
  14. FLAXSEED [Concomitant]
     Active Substance: FLAX SEED
  15. CALCITRIOL. [Concomitant]
     Active Substance: CALCITRIOL
  16. FASTCLIX [Concomitant]
  17. TAMSULOSIN [Concomitant]
     Active Substance: TAMSULOSIN
  18. ACCU-CHEK [Concomitant]
  19. OLANZAPINE. [Concomitant]
     Active Substance: OLANZAPINE
  20. PREDNISONE. [Concomitant]
     Active Substance: PREDNISONE
  21. SIMVASTATIN. [Concomitant]
     Active Substance: SIMVASTATIN
  22. ZOLPIDEM [Concomitant]
     Active Substance: ZOLPIDEM\ZOLPIDEM TARTRATE

REACTIONS (1)
  - Cough [None]

NARRATIVE: CASE EVENT DATE: 20181226
